FAERS Safety Report 7884448-9 (Version None)
Quarter: 2011Q4

REPORT INFORMATION
  Report Type: 
  Country: None (occurrence: None)
  Receive Date: 20111102
  Receipt Date: 20111027
  Transmission Date: 20120403
  Serious: Yes (Hospitalization)
  Sender: FDA-Public Use
  Company Number: US-ROCHE-1003121

PATIENT
  Age: 74 Year
  Sex: Female
  Weight: 63 kg

DRUGS (11)
  1. KEPPRA [Concomitant]
  2. AVASTIN [Suspect]
     Indication: GLIOBLASTOMA
     Dates: start: 20110420
  3. CLONIDINE [Concomitant]
  4. COUMADIN [Concomitant]
  5. ONDANSETRON [Concomitant]
  6. TEMOZOLOMIDE [Suspect]
     Indication: GLIOBLASTOMA
     Dosage: 75OR MG/M2
     Route: 048
     Dates: start: 20110420
  7. LISINOPRIL AND HYDROCHLOROTHIAZIDE [Concomitant]
  8. CELEXA [Concomitant]
  9. COLACE [Concomitant]
  10. TOPAMAX [Concomitant]
  11. LOVASTATIN [Concomitant]

REACTIONS (1)
  - CONFUSIONAL STATE [None]
